FAERS Safety Report 7703055-1 (Version None)
Quarter: 2011Q3

REPORT INFORMATION
  Report Type: 
  Country: None (occurrence: None)
  Receive Date: 20110817
  Receipt Date: 20110719
  Transmission Date: 20111222
  Serious: Yes (Other)
  Sender: FDA-Public Use
  Company Number: VER-2011-00625

PATIENT
  Sex: 0

DRUGS (1)
  1. CYCLOSET [Suspect]
     Indication: PRODUCT USED FOR UNKNOWN INDICATION

REACTIONS (3)
  - CONFUSIONAL STATE [None]
  - OEDEMA [None]
  - SWELLING [None]
